FAERS Safety Report 6152825-2 (Version None)
Quarter: 2009Q2

REPORT INFORMATION
  Report Type: 
  Country: None (occurrence: None)
  Receive Date: 20090413
  Receipt Date: 20090331
  Transmission Date: 20091009
  Serious: Yes (Hospitalization)
  Sender: FDA-Public Use
  Company Number: PL-PFIZER INC-2009191736

PATIENT

DRUGS (38)
  1. METHYLPREDNISOLONE AND METHYLPREDNISOLONE ACETATE AND METHYLPREDNISOLO [Suspect]
     Dates: start: 20081110, end: 20081110
  2. METHYLPREDNISOLONE AND METHYLPREDNISOLONE ACETATE AND METHYLPREDNISOLO [Suspect]
     Dosage: 40 MG, UNK
     Dates: start: 20081111
  3. CYCLOSPORINE [Suspect]
     Dosage: 125 MG, 2X/DAY
     Route: 048
     Dates: start: 20090223
  4. CYCLOSPORINE [Suspect]
     Dosage: UNK
     Dates: start: 20090220, end: 20090222
  5. CYCLOSPORINE [Suspect]
     Dosage: 100 MG, 2X/DAY
     Dates: start: 20090218, end: 20090219
  6. CYCLOSPORINE [Suspect]
     Dosage: 150 MG, 2X/DAY
     Dates: start: 20090216, end: 20090217
  7. CYCLOSPORINE [Suspect]
     Dosage: UNK
     Dates: start: 20090214, end: 20090215
  8. CYCLOSPORINE [Suspect]
     Dosage: 100 MG, 2X/DAY
     Dates: start: 20090120, end: 20090213
  9. CYCLOSPORINE [Suspect]
     Dosage: UNK
     Dates: start: 20081229, end: 20090119
  10. CYCLOSPORINE [Suspect]
     Dosage: 125 MG, 2X/DAY
     Dates: start: 20081121, end: 20081228
  11. CYCLOSPORINE [Suspect]
     Dosage: 175 MG, 2X/DAY
     Dates: start: 20081119, end: 20081120
  12. CYCLOSPORINE [Suspect]
     Dosage: UNK
     Dates: start: 20081118, end: 20081118
  13. CYCLOSPORINE [Suspect]
     Dosage: 250 MG, 2X/DAY
     Dates: start: 20081110, end: 20081117
  14. MYCOPHENOLATE MOFETIL [Suspect]
     Dosage: 1000 MG, 2X/DAY
     Route: 048
     Dates: start: 20090312
  15. MYCOPHENOLATE MOFETIL [Suspect]
     Dosage: 250 MG, 2X/DAY
     Dates: start: 20090120, end: 20090311
  16. MYCOPHENOLATE MOFETIL [Suspect]
     Dosage: 500 MG, 3X/DAY
     Dates: start: 20090117, end: 20090119
  17. MYCOPHENOLATE MOFETIL [Suspect]
     Dosage: 1000 MG, 2X/DAY
     Dates: start: 20080110, end: 20090116
  18. CO-TRIMOXAZOLE [Concomitant]
     Dosage: UNK
     Route: 048
     Dates: start: 20081110
  19. RANITIDINE [Concomitant]
     Dosage: UNK
     Route: 048
     Dates: start: 20081110
  20. INSULIN [Concomitant]
     Dosage: UNK
  21. BISOPROLOL FUMARATE [Concomitant]
     Dosage: UNK
     Route: 048
     Dates: start: 20081114
  22. NYSTATIN [Concomitant]
     Route: 048
     Dates: start: 20081110, end: 20090311
  23. ACYCLOVIR [Concomitant]
     Route: 048
     Dates: start: 20081202, end: 20081210
  24. CEFTAZIDIME [Concomitant]
     Route: 042
     Dates: start: 20081115, end: 20081121
  25. AUGMENTIN '125' [Concomitant]
     Route: 048
     Dates: start: 20081216, end: 20081229
  26. CIPROFLOXACIN [Concomitant]
     Route: 048
     Dates: start: 20081230, end: 20090107
  27. AMPICILLIN SODIUM/SULBACTAM SODIUM [Concomitant]
     Route: 042
     Dates: start: 20090119, end: 20090202
  28. CYMEVENE [Concomitant]
     Route: 042
     Dates: start: 20090120, end: 20090127
  29. FLUCONAZOLE [Concomitant]
     Dosage: UNK
     Route: 048
     Dates: start: 20090316
  30. FLUCONAZOLE [Concomitant]
     Route: 048
     Dates: start: 20090212, end: 20090216
  31. AMLODIPINE [Concomitant]
     Dosage: UNK
     Route: 048
     Dates: start: 20090218
  32. AMLODIPINE [Concomitant]
     Route: 048
     Dates: start: 20090204, end: 20090210
  33. PREDNISONE [Concomitant]
     Dosage: 5 MG, UNK
     Dates: start: 20090313
  34. PREDNISONE [Concomitant]
     Dosage: 10 MG, UNK
     Dates: start: 20090212, end: 20090312
  35. PREDNISONE [Concomitant]
     Dosage: 20 MG, UNK
     Dates: start: 20090204, end: 20090211
  36. PREDNISONE [Concomitant]
     Dosage: 5 MG, UNK
     Dates: start: 20090113, end: 20090203
  37. PREDNISONE [Concomitant]
     Dosage: 10 MG, UNK
     Dates: start: 20081229, end: 20090112
  38. PREDNISONE [Concomitant]
     Dosage: 20 MG, 1X/DAY
     Dates: start: 20081112, end: 20081228

REACTIONS (1)
  - TUBERCULOSIS [None]
